FAERS Safety Report 20051522 (Version 2)
Quarter: 2021Q4

REPORT INFORMATION
  Report Type: Other
  Country: US (occurrence: None)
  Receive Date: 20211110
  Receipt Date: 20211227
  Transmission Date: 20220303
  Serious: Yes (Other)
  Sender: FDA-Public Use
  Company Number: US-ROCHE-2948356

PATIENT
  Sex: Female

DRUGS (3)
  1. ACTEMRA [Suspect]
     Active Substance: TOCILIZUMAB
     Indication: Systemic sclerosis pulmonary
     Dosage: INJECT 162MG SUBCUTANEOUSLY EVERY 7 DAY(S)
     Route: 058
  2. ACTEMRA [Suspect]
     Active Substance: TOCILIZUMAB
  3. CELLCEPT [Concomitant]
     Active Substance: MYCOPHENOLATE MOFETIL

REACTIONS (8)
  - Spinal fracture [Unknown]
  - Spinal fracture [Unknown]
  - Herpes zoster [Unknown]
  - Fall [Unknown]
  - Thyroid function test abnormal [Unknown]
  - Raynaud^s phenomenon [Unknown]
  - Off label use [Unknown]
  - Urinary tract infection [Unknown]
